FAERS Safety Report 22255174 (Version 1)
Quarter: 2023Q2

REPORT INFORMATION
  Report Type: Spontaneous
  Country: CA (occurrence: CA)
  Receive Date: 20230426
  Receipt Date: 20230426
  Transmission Date: 20230722
  Serious: Yes (Other)
  Sender: FDA-Public Use
  Company Number: CA-PFIZER INC-202300170069

PATIENT
  Age: 68 Year
  Sex: Female
  Weight: 64.853 kg

DRUGS (1)
  1. VARENICLINE TARTRATE [Suspect]
     Active Substance: VARENICLINE TARTRATE
     Dosage: 1 MG, 2X/DAY
     Route: 048

REACTIONS (6)
  - Abdominal pain upper [Recovered/Resolved]
  - Cholelithiasis [Recovered/Resolved]
  - Chromaturia [Recovered/Resolved]
  - Hepatic enzyme increased [Recovered/Resolved]
  - Hepatic steatosis [Recovered/Resolved]
  - Nausea [Recovered/Resolved]
